FAERS Safety Report 10430495 (Version 1)
Quarter: 2014Q3

REPORT INFORMATION
  Report Type: Spontaneous
  Country: CO (occurrence: CO)
  Receive Date: 20140904
  Receipt Date: 20140904
  Transmission Date: 20150326
  Serious: Yes (Other)
  Sender: FDA-Public Use
  Company Number: CO-BAYER-2014-127887

PATIENT
  Age: 25 Year
  Sex: Female

DRUGS (1)
  1. QLAIRA [Suspect]
     Active Substance: DIENOGEST\ESTRADIOL VALERATE
     Indication: CONTRACEPTION
     Dosage: 1 DF, QD
     Route: 048
     Dates: start: 201212, end: 20140824

REACTIONS (2)
  - Amenorrhoea [None]
  - Genital haemorrhage [None]

NARRATIVE: CASE EVENT DATE: 201212
